FAERS Safety Report 8604138-4 (Version None)
Quarter: 2012Q3

REPORT INFORMATION
  Report Type: 
  Country: None (occurrence: None)
  Receive Date: 20120806
  Receipt Date: 20120606
  Transmission Date: 20120928
  Serious: Yes (Other)
  Sender: FDA-Public Use
  Company Number: DKLU1083560

PATIENT
  Age: 52 Year
  Sex: Male

DRUGS (4)
  1. AZARGA (AZARGA) [Concomitant]
  2. DEPAKENE [Suspect]
     Indication: EPILEPSY
     Dosage: 300 MG MILLIGRAM(S) 1 IN 1 D, ORAL, 800 MG MILLIGRAM(S), 2 IN 1 D, ORAL
     Route: 048
     Dates: start: 20110701
  3. ONFI [Suspect]
     Indication: EPILEPSY
     Dosage: 10 MG MILLIGRAM(S), ORAL
     Route: 048
     Dates: end: 20110701
  4. TAMSULOSIN HCL [Concomitant]

REACTIONS (7)
  - SOMNOLENCE [None]
  - EPILEPSY [None]
  - DISTURBANCE IN ATTENTION [None]
  - TREMOR [None]
  - AMNESIA [None]
  - DRUG INEFFECTIVE [None]
  - DYSPHEMIA [None]
